FAERS Safety Report 11339289 (Version 1)
Quarter: 2015Q3

REPORT INFORMATION
  Report Type: Spontaneous
  Country: IT (occurrence: IT)
  Receive Date: 20150804
  Receipt Date: 20150804
  Transmission Date: 20151125
  Serious: Yes (Other)
  Sender: FDA-Public Use
  Company Number: IT-HOSPIRA-2959711

PATIENT
  Age: 55 Year
  Sex: Female

DRUGS (2)
  1. GEMCITABINE HYDROCHLORIDE. [Suspect]
     Active Substance: GEMCITABINE HYDROCHLORIDE
     Indication: OVARIAN CANCER STAGE IV
     Dosage: OF BODY SURFACE
     Route: 042
     Dates: start: 20141202, end: 20150505
  2. BEVACIZUMAB [Concomitant]
     Active Substance: BEVACIZUMAB
     Indication: OVARIAN CANCER STAGE IV
     Route: 042
     Dates: start: 20141202, end: 20150505

REACTIONS (3)
  - Pruritus generalised [Unknown]
  - Haemorrhagic diathesis [Unknown]
  - Angioedema [Unknown]

NARRATIVE: CASE EVENT DATE: 20150507
